FAERS Safety Report 9713619 (Version 2)
Quarter: 2014Q2

REPORT INFORMATION
  Report Type: Spontaneous
  Country: ES (occurrence: ES)
  Receive Date: 20131126
  Receipt Date: 20140527
  Transmission Date: 20141212
  Serious: Yes (Other)
  Sender: FDA-Public Use
  Company Number: ES-JNJFOC-20131111860

PATIENT
  Sex: Male

DRUGS (2)
  1. STELARA [Suspect]
     Indication: PSORIASIS
     Dosage: FOR 2 YEARS
     Route: 058
     Dates: start: 20091218, end: 20130719
  2. SIMVASTATIN [Concomitant]
     Route: 048

REACTIONS (1)
  - Prostate cancer [Recovering/Resolving]
